FAERS Safety Report 10159589 (Version 1)
Quarter: 2014Q2

REPORT INFORMATION
  Report Type: Spontaneous
  Country: US (occurrence: None)
  Receive Date: 20140507
  Receipt Date: 20140507
  Transmission Date: 20141212
  Serious: No
  Sender: FDA-Public Use
  Company Number: None

PATIENT
  Age: 4 Year
  Sex: Female
  Weight: 19.05 kg

DRUGS (1)
  1. MONTELUKAST [Suspect]
     Indication: SEASONAL ALLERGY
     Dosage: 1 TABLET AT BEDTIME TAKEN BY MOUTH
     Route: 048
     Dates: start: 20140410, end: 20140505

REACTIONS (5)
  - Crying [None]
  - Anger [None]
  - Insomnia [None]
  - Abnormal dreams [None]
  - Personality change [None]
